FAERS Safety Report 16847550 (Version 1)
Quarter: 2019Q3

REPORT INFORMATION
  Report Type: Spontaneous
  Country: US (occurrence: US)
  Receive Date: 20190924
  Receipt Date: 20190924
  Transmission Date: 20191005
  Serious: No
  Sender: FDA-Public Use
  Company Number: US-ACORDA-ACO_160225_2019

PATIENT
  Age: 62 Year
  Sex: Female

DRUGS (2)
  1. INBRIJA [Suspect]
     Active Substance: LEVODOPA
     Indication: PARKINSON^S DISEASE
     Dosage: 84 MILLIGRAM, PRN
     Dates: start: 20190725
  2. INBRIJA [Suspect]
     Active Substance: LEVODOPA
     Indication: ON AND OFF PHENOMENON

REACTIONS (3)
  - Choking [Unknown]
  - Cough [Unknown]
  - Device issue [Unknown]

NARRATIVE: CASE EVENT DATE: 20190725
